FAERS Safety Report 12122061 (Version 1)
Quarter: 2016Q1

REPORT INFORMATION
  Report Type: Spontaneous
  Country: US (occurrence: US)
  Receive Date: 20160226
  Receipt Date: 20160226
  Transmission Date: 20160526
  Serious: No
  Sender: FDA-Public Use
  Company Number: US-ALLERGAN-1425364US

PATIENT
  Sex: Male

DRUGS (1)
  1. REFRESH OPTIVE SENSITIVE [Suspect]
     Active Substance: CARBOXYMETHYLCELLULOSE SODIUM\GLYCERIN
     Indication: EYE LUBRICATION THERAPY
     Dosage: TWO OR THREE TIMES A WEEK
     Route: 047
     Dates: start: 20141126, end: 20141206

REACTIONS (2)
  - Eye injury [Recovered/Resolved]
  - Superficial injury of eye [Recovered/Resolved]
